FAERS Safety Report 12695137 (Version 1)
Quarter: 2016Q3

REPORT INFORMATION
  Report Type: Not Available
  Country: None (occurrence: US)
  Receive Date: 20160829
  Receipt Date: 20160829
  Transmission Date: 20161109
  Serious: Yes (Other)
  Sender: FDA-Public Use
  Company Number: US-AKORN-37589

PATIENT
  Sex: Male

DRUGS (1)
  1. ERYTHROMYCIN OPHTHALMIC OINTMENT 0.5%, USP [Suspect]
     Active Substance: ERYTHROMYCIN

REACTIONS (2)
  - Drug ineffective [None]
  - Corneal abrasion [None]
